FAERS Safety Report 5575674-2 (Version None)
Quarter: 2007Q4

REPORT INFORMATION
  Report Type: 
  Country: None (occurrence: None)
  Receive Date: 20071221
  Receipt Date: 20071207
  Transmission Date: 20080405
  Serious: Yes (Life-Threatening)
  Sender: FDA-Public Use
  Company Number: E2020-01979-SPO-GB

PATIENT
  Age: 79 Year
  Sex: Male

DRUGS (3)
  1. ARICEPT [Suspect]
     Indication: DEMENTIA
     Dosage: 10 MG, 1 IN 1 D, ORAL
     Route: 048
     Dates: start: 20010101, end: 20071101
  2. ASPIRIN [Concomitant]
  3. ZOPICLONE (ZOPICLONE) [Concomitant]

REACTIONS (6)
  - ABASIA [None]
  - DRUG WITHDRAWAL SYNDROME [None]
  - GENERAL PHYSICAL HEALTH DETERIORATION [None]
  - MUSCLE RIGIDITY [None]
  - SINUS BRADYCARDIA [None]
  - SPEECH DISORDER [None]
